FAERS Safety Report 16112229 (Version 1)
Quarter: 2019Q1

REPORT INFORMATION
  Report Type: Spontaneous
  Country: US (occurrence: US)
  Receive Date: 20190325
  Receipt Date: 20190325
  Transmission Date: 20190418
  Serious: No
  Sender: FDA-Public Use
  Company Number: US-AVEDRO-AVE-2019-0017-AE

PATIENT
  Sex: Male

DRUGS (1)
  1. KXL SYSTEM [Suspect]
     Active Substance: DEVICE
     Indication: CORNEAL DISORDER
     Route: 047

REACTIONS (2)
  - Therapy cessation [Unknown]
  - No adverse event [Unknown]

NARRATIVE: CASE EVENT DATE: 20190109
